FAERS Safety Report 19925134 (Version 2)
Quarter: 2021Q4

REPORT INFORMATION
  Report Type: Spontaneous
  Country: ES (occurrence: ES)
  Receive Date: 20211006
  Receipt Date: 20211013
  Transmission Date: 20220303
  Serious: Yes (Hospitalization)
  Sender: FDA-Public Use
  Company Number: ES-EISAI MEDICAL RESEARCH-EC-2021-100560

PATIENT
  Age: 78 Year
  Sex: Male

DRUGS (21)
  1. LENVIMA [Suspect]
     Active Substance: LENVATINIB
     Indication: Hepatocellular carcinoma
     Route: 048
     Dates: start: 202107, end: 20210909
  2. DILTIAZEM [Concomitant]
     Active Substance: DILTIAZEM
     Indication: Hypertension
     Dosage: 240 MG, FREQUENCY UNKNOWN
     Route: 065
  3. FUROSEMIDE [Concomitant]
     Active Substance: FUROSEMIDE
     Indication: Hypertension
     Dosage: 40 MG, FREQUENCY UNKNOWN
     Route: 065
  4. DEXAMETHASONE [Concomitant]
     Active Substance: DEXAMETHASONE
     Indication: Idiopathic pulmonary fibrosis
     Dosage: 4 MG, FREQUENCY UNKNOWN
     Route: 065
  5. ATORVASTATIN / EZETIMIBE [Concomitant]
     Indication: Dyslipidaemia
     Dosage: 40 MG/10 MG, FREQUENCY UNKNOWN
     Route: 065
  6. LINAGLIPTIN [Concomitant]
     Active Substance: LINAGLIPTIN
     Indication: Diabetes mellitus
     Dosage: 5 MG, FREQUENCY UNKNOWN
     Route: 065
  7. INSULIN GLARGINE [Concomitant]
     Active Substance: INSULIN GLARGINE
     Indication: Diabetes mellitus
     Dosage: 8 UI, FREQUENCY UNKNOWN
     Route: 065
  8. DUTASTERIDE / TAMSULOSIN [Concomitant]
     Indication: Urethral stenosis
     Dosage: DOSE AND FREQUENCY UNKNOWN
     Route: 065
  9. SINTROM [Concomitant]
     Active Substance: ACENOCOUMAROL
     Indication: Atrial fibrillation
     Dosage: 4 MG, FREQUENCY UNKNOWN
     Route: 065
  10. ENOXAPARIN [Concomitant]
     Active Substance: ENOXAPARIN
     Indication: Atrial fibrillation
     Dosage: 8000 UI, FREQUENCY UNKNOWN
     Route: 065
  11. OMEPRAZOLE [Concomitant]
     Active Substance: OMEPRAZOLE
     Indication: Gastritis
     Dosage: DOSE AND FREQUENCY UNKNOWN
     Route: 065
  12. IRON [Concomitant]
     Active Substance: IRON
     Indication: Gastritis
     Dosage: DOSE AND FREQUENCY UNKNOWN
     Route: 065
  13. IRON [Concomitant]
     Active Substance: IRON
     Indication: Anaemia
  14. OPTOVITE [Concomitant]
     Indication: Gastritis
     Dosage: DOSE AND FREQUENCY UNKNOWN
     Route: 030
  15. OPTOVITE [Concomitant]
     Indication: Anaemia
  16. FOLIC ACID [Concomitant]
     Active Substance: FOLIC ACID
     Indication: Gastritis
     Dosage: 5 MG, FREQUENCY UNKNOWN
     Route: 065
  17. FOLIC ACID [Concomitant]
     Active Substance: FOLIC ACID
     Indication: Anaemia
  18. PENTOXIFYLLINE [Concomitant]
     Active Substance: PENTOXIFYLLINE
     Indication: Product used for unknown indication
     Dosage: 400 MG, FREQUENCY UNKNOWN
     Route: 065
  19. ALLOPURINOL [Concomitant]
     Active Substance: ALLOPURINOL
     Indication: Product used for unknown indication
     Dosage: 300 MG, FREQUENCY UNKNOWN
     Route: 065
  20. ACETAMINOPHEN [Concomitant]
     Active Substance: ACETAMINOPHEN
     Indication: Product used for unknown indication
     Dosage: DOSE AND FREQUENCY UNKNOWN
     Route: 065
  21. HYDROXYZINE [Concomitant]
     Active Substance: HYDROXYZINE HYDROCHLORIDE
     Indication: Product used for unknown indication
     Dosage: 25 MG, FREQUENCY UNKNOWN
     Route: 065

REACTIONS (4)
  - Bladder perforation [Recovered/Resolved]
  - Pneumonia [Recovered/Resolved]
  - Haematuria [Recovered/Resolved]
  - Cardiac failure [Recovered/Resolved]

NARRATIVE: CASE EVENT DATE: 20210909
